FAERS Safety Report 9969535 (Version 1)
Quarter: 2014Q1

REPORT INFORMATION
  Report Type: Spontaneous
  Country: IT (occurrence: IT)
  Receive Date: 20140306
  Receipt Date: 20140306
  Transmission Date: 20141002
  Serious: Yes (Hospitalization, Other)
  Sender: FDA-Public Use
  Company Number: IT-JNJFOC-20140216117

PATIENT
  Age: 20 Year
  Sex: Male

DRUGS (2)
  1. LOPERAMIDE HYDROCHLORIDE [Suspect]
     Indication: DIARRHOEA
     Dosage: OVER 6 HOURS
     Route: 065
  2. LOPERAMIDE HYDROCHLORIDE [Suspect]
     Indication: DIARRHOEA
     Dosage: OVER 6 HOURS
     Route: 065

REACTIONS (3)
  - Catatonia [Recovered/Resolved]
  - Overdose [Unknown]
  - Diarrhoea [Recovered/Resolved]
